FAERS Safety Report 24705867 (Version 1)
Quarter: 2024Q4

REPORT INFORMATION
  Report Type: Spontaneous
  Country: CN (occurrence: CN)
  Receive Date: 20241206
  Receipt Date: 20241206
  Transmission Date: 20250115
  Serious: Yes (Life-Threatening, Other)
  Sender: PFIZER
  Company Number: CN-PFIZER INC-202400314563

PATIENT
  Age: 89 Year
  Sex: Male

DRUGS (9)
  1. TIGECYCLINE [Suspect]
     Active Substance: TIGECYCLINE
     Dosage: 100 MG, Q12H
     Route: 042
     Dates: start: 20170919
  2. TIGECYCLINE [Suspect]
     Active Substance: TIGECYCLINE
     Dosage: 50 MG, Q12H
     Route: 042
  3. TIGECYCLINE [Suspect]
     Active Substance: TIGECYCLINE
     Dosage: 75 MG, Q12H
     Route: 042
     Dates: start: 20170922
  4. TIGECYCLINE [Suspect]
     Active Substance: TIGECYCLINE
     Dosage: 100 MG, Q12H
     Route: 042
     Dates: start: 20171008
  5. AMIKACIN [Suspect]
     Active Substance: AMIKACIN
     Dosage: 0.6 G, QD
     Route: 042
     Dates: start: 20170919
  6. AMIKACIN [Suspect]
     Active Substance: AMIKACIN
     Dosage: 0.4 G, QD
     Route: 042
  7. RIVAROXABAN [Suspect]
     Active Substance: RIVAROXABAN
     Dosage: UNK
  8. MEROPENEM [Concomitant]
     Active Substance: MEROPENEM
     Indication: Pneumonia
     Dosage: 0.5 G, Q12H
     Route: 041
  9. FENOFIBRATE [Concomitant]
     Active Substance: FENOFIBRATE
     Indication: Lipids decreased
     Dosage: 0.16 G, QN
     Route: 048

REACTIONS (4)
  - Blood triglycerides increased [Recovered/Resolved]
  - Platelet count decreased [Recovered/Resolved]
  - Hepatic function abnormal [Recovered/Resolved]
  - Coagulopathy [Recovered/Resolved]

NARRATIVE: CASE EVENT DATE: 20171017
